FAERS Safety Report 8338113-4 (Version None)
Quarter: 2012Q2

REPORT INFORMATION
  Report Type: 
  Country: None (occurrence: None)
  Receive Date: 20120504
  Receipt Date: 20120425
  Transmission Date: 20120825
  Serious: Yes (Hospitalization, Other)
  Sender: FDA-Public Use
  Company Number: US-ASTRAZENECA-2012SE27195

PATIENT
  Age: 65 Year
  Sex: Female
  Weight: 66.5 kg

DRUGS (9)
  1. CRESTOR [Suspect]
     Indication: HYPERLIPIDAEMIA
     Route: 048
  2. GLIPIZIDE [Concomitant]
     Route: 048
  3. CARVEDILOL [Concomitant]
     Route: 048
  4. SPIRONOLACTONE [Concomitant]
     Route: 048
  5. OMEPRAZOLE [Suspect]
     Route: 048
  6. OMEPRAZOLE [Suspect]
     Route: 048
  7. LISINOPRIL [Suspect]
     Route: 048
  8. ASPIR [Concomitant]
     Route: 048
  9. EFFIENT [Concomitant]
     Route: 048

REACTIONS (12)
  - HYPERTENSION [None]
  - DYSPEPSIA [None]
  - CARDIAC FAILURE CONGESTIVE [None]
  - CONGESTIVE CARDIOMYOPATHY [None]
  - TYPE 2 DIABETES MELLITUS [None]
  - ACUTE MYOCARDIAL INFARCTION [None]
  - CORONARY ARTERY STENOSIS [None]
  - MUSCULAR WEAKNESS [None]
  - PARAESTHESIA [None]
  - COUGH [None]
  - RENAL FAILURE CHRONIC [None]
  - NECK PAIN [None]
